FAERS Safety Report 14613975 (Version 1)
Quarter: 2018Q1

REPORT INFORMATION
  Report Type: Spontaneous
  Country: AT (occurrence: AT)
  Receive Date: 20180308
  Receipt Date: 20180308
  Transmission Date: 20180509
  Serious: Yes (Hospitalization)
  Sender: FDA-Public Use
  Company Number: AT-BAYER-2018-040563

PATIENT
  Age: 24 Year
  Sex: Female

DRUGS (1)
  1. JAYDESS [Suspect]
     Active Substance: LEVONORGESTREL
     Dosage: 14 MCG/24HR, CONT
     Route: 015

REACTIONS (4)
  - Ectopic pregnancy with contraceptive device [None]
  - Abdominal pain [None]
  - Drug ineffective [None]
  - Endometriosis [None]
